FAERS Safety Report 21754217 (Version 1)
Quarter: 2022Q4

REPORT INFORMATION
  Report Type: Report from Study
  Country: US (occurrence: US)
  Receive Date: 20221220
  Receipt Date: 20221220
  Transmission Date: 20230113
  Serious: Yes (Death)
  Sender: FDA-Public Use
  Company Number: US-BAYER-2022P029658

PATIENT
  Age: 72 Year
  Sex: Female
  Weight: 58.967 kg

DRUGS (4)
  1. ADEMPAS [Suspect]
     Active Substance: RIOCIGUAT
     Indication: Pulmonary arterial hypertension
     Dosage: UNK
     Route: 048
  2. ADEMPAS [Suspect]
     Active Substance: RIOCIGUAT
     Indication: Pulmonary arterial hypertension
     Dosage: 1.0 MG, TID
     Route: 048
  3. ELIQUIS [Concomitant]
     Active Substance: APIXABAN
  4. DILTIAZEM [Concomitant]
     Active Substance: DILTIAZEM

REACTIONS (1)
  - Death [Fatal]

NARRATIVE: CASE EVENT DATE: 20221207
